FAERS Safety Report 24852761 (Version 1)
Quarter: 2025Q1

REPORT INFORMATION
  Report Type: Other
  Country: BR (occurrence: BR)
  Receive Date: 20250116
  Receipt Date: 20250116
  Transmission Date: 20250409
  Serious: Yes (Disabling, Other)
  Sender: BRECKENRIDGE PHARMACEUTICAL, INC.
  Company Number: BR-Breckenridge Pharmaceutical, Inc.-2169230

PATIENT
  Age: 36 Year
  Sex: Female

DRUGS (4)
  1. ZOLPIDEM [Suspect]
     Active Substance: ZOLPIDEM TARTRATE
     Indication: Insomnia
  2. SERTRALINE [Concomitant]
     Active Substance: SERTRALINE HYDROCHLORIDE
  3. MIRTAZAPINE [Concomitant]
     Active Substance: MIRTAZAPINE
  4. VENLAFAXINE [Concomitant]
     Active Substance: VENLAFAXINE HYDROCHLORIDE

REACTIONS (10)
  - Toxicity to various agents [Unknown]
  - Drug dependence [Unknown]
  - Dependence [Unknown]
  - Social problem [Unknown]
  - Disturbance in attention [Unknown]
  - Somnambulism [Unknown]
  - Dissociative disorder [Unknown]
  - Insomnia [Unknown]
  - Drug tolerance [Unknown]
  - Drug abuse [Not Recovered/Not Resolved]
